FAERS Safety Report 4544878-X (Version None)
Quarter: 2004Q4

REPORT INFORMATION
  Report Type: 
  Country: None (occurrence: None)
  Receive Date: 20041230
  Receipt Date: 20041221
  Transmission Date: 20050328
  Serious: Yes (Other)
  Sender: FDA-Public Use
  Company Number: 2004-12-1218

PATIENT
  Sex: Female
  Weight: 1 kg

DRUGS (2)
  1. GENTAMICIN [Suspect]
     Indication: INTERSTITIAL LUNG DISEASE
  2. AMPICILLIN [Suspect]
     Indication: INTERSTITIAL LUNG DISEASE

REACTIONS (8)
  - BLOOD PRESSURE DECREASED [None]
  - FEVER NEONATAL [None]
  - HEART DISEASE CONGENITAL [None]
  - JARISCH-HERXHEIMER REACTION [None]
  - NEONATAL DISORDER [None]
  - OXYGEN SATURATION DECREASED [None]
  - PERSISTENT FOETAL CIRCULATION [None]
  - SKIN DISCOLOURATION [None]
